FAERS Safety Report 23809379 (Version 1)
Quarter: 2024Q2

REPORT INFORMATION
  Report Type: Spontaneous
  Country: CN (occurrence: CN)
  Receive Date: 20240502
  Receipt Date: 20240502
  Transmission Date: 20240716
  Serious: Yes (Hospitalization, Other)
  Sender: FDA-Public Use
  Company Number: CN-002147023-NVSC2024CN090090

PATIENT
  Age: 80 Year
  Sex: Female
  Weight: 60 kg

DRUGS (1)
  1. SACUBITRIL\VALSARTAN [Suspect]
     Active Substance: SACUBITRIL\VALSARTAN
     Indication: Cardiac failure
     Dosage: 50.000 MG, BID
     Route: 048
     Dates: start: 20240412, end: 20240419

REACTIONS (17)
  - Dizziness [Recovering/Resolving]
  - Palpitations [Recovering/Resolving]
  - Somnolence [Recovering/Resolving]
  - Hypotension [Recovering/Resolving]
  - Blood potassium increased [Recovering/Resolving]
  - Upper respiratory tract infection [Recovering/Resolving]
  - Blood creatinine increased [Recovering/Resolving]
  - Fall [Recovering/Resolving]
  - Oedema peripheral [Recovering/Resolving]
  - Blood urea increased [Recovering/Resolving]
  - Blood uric acid increased [Recovering/Resolving]
  - Blood sodium decreased [Recovering/Resolving]
  - Alanine aminotransferase increased [Recovering/Resolving]
  - Blood bilirubin increased [Recovering/Resolving]
  - Blood bilirubin unconjugated increased [Recovering/Resolving]
  - Bilirubin conjugated increased [Recovering/Resolving]
  - Food aversion [Recovering/Resolving]

NARRATIVE: CASE EVENT DATE: 20240418
